FAERS Safety Report 6898403-9 (Version None)
Quarter: 2010Q3

REPORT INFORMATION
  Report Type: 
  Country: None (occurrence: None)
  Receive Date: 20100802
  Receipt Date: 20071017
  Transmission Date: 20110219
  Serious: Yes (Other)
  Sender: FDA-Public Use
  Company Number: US-PFIZER INC-2007076271

PATIENT
  Sex: Female
  Weight: 69.9 kg

DRUGS (11)
  1. LYRICA [Suspect]
     Route: 048
     Dates: start: 20060603, end: 20060714
  2. SYNTHROID [Concomitant]
  3. COZAAR [Concomitant]
  4. DIGITEK [Concomitant]
  5. ALDACTONE [Concomitant]
  6. ALLOPURINOL [Concomitant]
  7. STARLIX [Concomitant]
  8. LIPITOR [Concomitant]
  9. TOPROL-XL [Concomitant]
  10. LASIX [Concomitant]
  11. WARFARIN SODIUM [Concomitant]

REACTIONS (3)
  - BLOOD CREATINE ABNORMAL [None]
  - BLOOD CREATININE INCREASED [None]
  - BLOOD UREA INCREASED [None]
